FAERS Safety Report 5775268-X (Version None)
Quarter: 2008Q2

REPORT INFORMATION
  Report Type: 
  Country: None (occurrence: None)
  Receive Date: 20080616
  Receipt Date: 20080616
  Transmission Date: 20081010
  Serious: Yes (Hospitalization)
  Sender: FDA-Public Use
  Company Number: None

PATIENT
  Sex: Female
  Weight: 80 kg

DRUGS (4)
  1. FLUOROURACIL [Suspect]
     Dosage: 4080 MG
     Dates: end: 20080514
  2. BEVACIZUMAB (RHUMAB VEGF) [Suspect]
     Dosage: 400 MG
     Dates: end: 20080512
  3. IRINOTECAN HCL [Suspect]
     Dosage: 270 MG
     Dates: end: 20080512
  4. LEUCOVORIN CALCIUM [Suspect]
     Dosage: 728 MG
     Dates: end: 20080512

REACTIONS (2)
  - NEUTROPENIA [None]
  - WHITE BLOOD CELL COUNT DECREASED [None]
